FAERS Safety Report 4301317-1 (Version None)
Quarter: 2004Q1

REPORT INFORMATION
  Report Type: 
  Country: None (occurrence: None)
  Receive Date: 20040223
  Receipt Date: 20030124
  Transmission Date: 20041129
  Serious: Yes (Other)
  Sender: FDA-Public Use
  Company Number: US-GLAXOSMITHKLINE-A0393884A

PATIENT
  Sex: Female

DRUGS (2)
  1. NAVELBINE [Suspect]
     Indication: BREAST CANCER
     Route: 042
  2. SALINE [Concomitant]
     Dosage: 300CC PER DAY
     Route: 042
     Dates: start: 20030122, end: 20030122

REACTIONS (2)
  - DIZZINESS [None]
  - HYPOTENSION [None]
